FAERS Safety Report 7205088-0 (Version None)
Quarter: 2010Q4

REPORT INFORMATION
  Report Type: 
  Country: None (occurrence: None)
  Receive Date: 20101230
  Receipt Date: 20101223
  Transmission Date: 20110411
  Serious: Yes (Disabling, Other)
  Sender: FDA-Public Use
  Company Number: US-MERCK-1012USA03789

PATIENT
  Sex: Female

DRUGS (1)
  1. FOSAMAX [Suspect]
     Indication: OSTEOPENIA
     Route: 048
     Dates: start: 20060101, end: 20100301

REACTIONS (11)
  - BONE DENSITY DECREASED [None]
  - BREAST CANCER [None]
  - GINGIVAL DISORDER [None]
  - HAEMORRHAGE [None]
  - HYPERTENSION [None]
  - JAW DISORDER [None]
  - LYMPHOEDEMA [None]
  - OSTEONECROSIS OF JAW [None]
  - OVARIAN CYST [None]
  - TOOTH LOSS [None]
  - TYPE 2 DIABETES MELLITUS [None]
